FAERS Safety Report 22340071 (Version 2)
Quarter: 2023Q2

REPORT INFORMATION
  Report Type: Spontaneous
  Country: BG (occurrence: None)
  Receive Date: 20230518
  Receipt Date: 20230531
  Transmission Date: 20230721
  Serious: Yes (Hospitalization)
  Sender: FDA-Public Use
  Company Number: 2023A108687

PATIENT
  Age: 59 Year
  Sex: Female
  Weight: 60 kg

DRUGS (1)
  1. ROSUVASTATIN [Suspect]
     Active Substance: ROSUVASTATIN
     Indication: Hypercholesterolaemia
     Dosage: 5 MG, QD (DAILY)
     Dates: start: 20221129

REACTIONS (2)
  - Hepatic steatosis [Recovering/Resolving]
  - Angina unstable [Recovered/Resolved]

NARRATIVE: CASE EVENT DATE: 20230110
